FAERS Safety Report 8365609-1 (Version None)
Quarter: 2012Q2

REPORT INFORMATION
  Report Type: 
  Country: None (occurrence: None)
  Receive Date: 20120516
  Receipt Date: 20120509
  Transmission Date: 20120825
  Serious: Yes (Hospitalization, Disabling, Other)
  Sender: FDA-Public Use
  Company Number: US-MERCK-1102USA02277

PATIENT
  Age: 50 Year
  Sex: Female
  Weight: 84 kg

DRUGS (6)
  1. FOSAMAX [Suspect]
     Indication: OSTEOPENIA
     Route: 048
     Dates: start: 19960101, end: 20100101
  2. FOSAMAX [Suspect]
     Route: 048
     Dates: start: 19960101, end: 20100101
  3. VITAMIN D (UNSPECIFIED) [Concomitant]
     Route: 048
     Dates: start: 19850101
  4. CITRACAL [Concomitant]
     Route: 048
     Dates: start: 19850101
  5. FOSAMAX [Suspect]
     Route: 048
  6. CALCIUM (UNSPECIFIED) AND VITAMIN D (UNSPECIFIED) [Concomitant]
     Route: 048
     Dates: start: 19850101

REACTIONS (70)
  - ANAEMIA POSTOPERATIVE [None]
  - CARTILAGE INJURY [None]
  - HYPERTENSION [None]
  - GASTRIC ULCER HAEMORRHAGE [None]
  - BRONCHITIS [None]
  - ACTINIC KERATOSIS [None]
  - CHEST DISCOMFORT [None]
  - INFECTION [None]
  - INAPPROPRIATE SCHEDULE OF DRUG ADMINISTRATION [None]
  - HYPERLIPIDAEMIA [None]
  - GASTROOESOPHAGEAL REFLUX DISEASE [None]
  - SEBORRHOEIC KERATOSIS [None]
  - VASCULITIS [None]
  - RIB FRACTURE [None]
  - DYSURIA [None]
  - ASTHMA [None]
  - ANXIETY [None]
  - PALPITATIONS [None]
  - PAIN IN EXTREMITY [None]
  - ANKLE FRACTURE [None]
  - ANAEMIA [None]
  - OSTEOARTHRITIS [None]
  - COUGH [None]
  - INSOMNIA [None]
  - TREATMENT NONCOMPLIANCE [None]
  - RHINITIS [None]
  - LEFT VENTRICULAR HYPERTROPHY [None]
  - IRON DEFICIENCY [None]
  - ADVERSE DRUG REACTION [None]
  - OSTEONECROSIS [None]
  - PUBIS FRACTURE [None]
  - NAUSEA [None]
  - CHONDROMALACIA [None]
  - HYPERSENSITIVITY [None]
  - MUSCLE STRAIN [None]
  - VAGINAL DISORDER [None]
  - FUNGAL INFECTION [None]
  - ELECTROCARDIOGRAM ABNORMAL [None]
  - EXCORIATION [None]
  - ARTHRALGIA [None]
  - DIVERTICULUM [None]
  - DEPRESSION [None]
  - HYPERTENSIVE HEART DISEASE [None]
  - UPPER RESPIRATORY TRACT INFECTION [None]
  - SPINAL OSTEOARTHRITIS [None]
  - URINARY TRACT INFECTION [None]
  - HYPERTONIC BLADDER [None]
  - MENOPAUSAL SYMPTOMS [None]
  - LABILE HYPERTENSION [None]
  - IRRITABLE BOWEL SYNDROME [None]
  - AORTIC BRUIT [None]
  - FEMUR FRACTURE [None]
  - VOMITING [None]
  - BLEPHARAL PAPILLOMA [None]
  - PAIN [None]
  - GASTROINTESTINAL DISORDER [None]
  - FATIGUE [None]
  - ARTHRITIS [None]
  - CHOLECYSTITIS [None]
  - CHOLELITHIASIS [None]
  - FALL [None]
  - AORTIC ARTERIOSCLEROSIS [None]
  - DERMATITIS CONTACT [None]
  - DEEP VEIN THROMBOSIS [None]
  - CYSTITIS [None]
  - VENTRICULAR EXTRASYSTOLES [None]
  - VITAMIN D DEFICIENCY [None]
  - VAGINITIS BACTERIAL [None]
  - VAGINAL INFECTION [None]
  - FASCIITIS [None]
